FAERS Safety Report 23760005 (Version 3)
Quarter: 2024Q2

REPORT INFORMATION
  Report Type: Spontaneous
  Country: US (occurrence: US)
  Receive Date: 20240419
  Receipt Date: 20240530
  Transmission Date: 20240715
  Serious: Yes (Hospitalization, Other)
  Sender: FDA-Public Use
  Company Number: US-SANOFI-02015515

PATIENT
  Age: 79 Year
  Sex: Female

DRUGS (1)
  1. LANTUS SOLOSTAR [Suspect]
     Active Substance: INSULIN GLARGINE
     Indication: Type 2 diabetes mellitus
     Dosage: BID 12 UNITS IN THE MORNING AND 16 UNITS IN THE EVENING
     Route: 065
     Dates: start: 2014

REACTIONS (5)
  - Loss of consciousness [Unknown]
  - Sleep disorder [Unknown]
  - Blood glucose increased [Unknown]
  - Intentional dose omission [Unknown]
  - Inappropriate schedule of product administration [Unknown]

NARRATIVE: CASE EVENT DATE: 20240101
